FAERS Safety Report 5501828-7 (Version None)
Quarter: 2007Q4

REPORT INFORMATION
  Report Type: 
  Country: None (occurrence: None)
  Receive Date: 20071030
  Receipt Date: 20061106
  Transmission Date: 20080405
  Serious: No
  Sender: FDA-Public Use
  Company Number: A0623546A

PATIENT
  Age: 59 Year
  Sex: Female

DRUGS (4)
  1. SEREVENT [Suspect]
     Indication: ASTHMA
     Route: 055
     Dates: start: 20040101
  2. ATENOLOL [Concomitant]
  3. FOSAMAX [Concomitant]
  4. LIPITOR [Concomitant]

REACTIONS (1)
  - PALPITATIONS [None]
